FAERS Safety Report 19992396 (Version 1)
Quarter: 2021Q4

REPORT INFORMATION
  Report Type: Spontaneous
  Country: FR (occurrence: FR)
  Receive Date: 20211025
  Receipt Date: 20211025
  Transmission Date: 20220304
  Serious: Yes (Congenital Anomaly, Other)
  Sender: FDA-Public Use
  Company Number: FR-ABBVIE-21K-056-4131906-00

PATIENT
  Sex: Female

DRUGS (1)
  1. VALPROATE SODIUM [Suspect]
     Active Substance: VALPROATE SODIUM
     Indication: Maternal exposure timing unspecified
     Route: 064

REACTIONS (10)
  - Cyanosis [Unknown]
  - Illness [Unknown]
  - Fatigue [Unknown]
  - Arrhythmia [Unknown]
  - Pain [Unknown]
  - Dysmorphism [Unknown]
  - Drug withdrawal syndrome neonatal [Unknown]
  - Hypoacusis [Unknown]
  - Malaise [Unknown]
  - Foetal exposure during pregnancy [Unknown]
